FAERS Safety Report 8715040 (Version 3)
Quarter: 2012Q4

REPORT INFORMATION
  Report Type: 
  Country: TR (occurrence: TR)
  Receive Date: 20120809
  Receipt Date: 20120927
  Transmission Date: 20130627
  Serious: No
  Sender: FDA-Public Use
  Company Number: TR-ELI_LILLY_AND_COMPANY-TR201208000828

PATIENT
  Age: 19 Year
  Sex: Female

DRUGS (1)
  1. HUMULIN REGULAR [Suspect]
     Indication: TYPE 1 DIABETES MELLITUS
     Dosage: 103 u, UNK
     Route: 042

REACTIONS (1)
  - Drug ineffective [Recovered/Resolved]
